FAERS Safety Report 6311780-2 (Version None)
Quarter: 2009Q3

REPORT INFORMATION
  Report Type: 
  Country: None (occurrence: None)
  Receive Date: 20090817
  Receipt Date: 20090806
  Transmission Date: 20100115
  Serious: Yes (Other)
  Sender: FDA-Public Use
  Company Number: US-ASTRAZENECA-2009SE07196

PATIENT
  Age: 81 Year
  Sex: Female

DRUGS (5)
  1. METOPROLOL SUCCINATE [Suspect]
     Route: 048
     Dates: start: 20050101, end: 20090301
  2. METOPROLOL SUCCINATE [Suspect]
     Route: 048
     Dates: start: 20090301
  3. ASPIRIN [Concomitant]
     Route: 065
  4. CALCITRATE [Concomitant]
     Indication: OSTEOPENIA
     Dosage: HALF A TABLET OF THE CALCITRATE
     Route: 065
     Dates: start: 20090701
  5. DIGOXIN [Concomitant]
     Route: 065
     Dates: end: 20090701

REACTIONS (7)
  - ABNORMAL DREAMS [None]
  - ATRIAL FIBRILLATION [None]
  - DIARRHOEA [None]
  - DRY EYE [None]
  - FATIGUE [None]
  - MACULAR DEGENERATION [None]
  - VISION BLURRED [None]
